FAERS Safety Report 7401440-9 (Version None)
Quarter: 2011Q2

REPORT INFORMATION
  Report Type: 
  Country: None (occurrence: None)
  Receive Date: 20110407
  Receipt Date: 20101220
  Transmission Date: 20111010
  Serious: No
  Sender: FDA-Public Use
  Company Number: A0900613A

PATIENT
  Age: 67 Year
  Sex: Male

DRUGS (3)
  1. SINEMET [Concomitant]
  2. LUNESTA [Concomitant]
  3. REQUIP XL [Suspect]
     Indication: PARKINSON'S DISEASE
     Dosage: 6MG PER DAY
     Route: 048
     Dates: start: 20100501

REACTIONS (2)
  - PAIN [None]
  - MUSCULOSKELETAL CHEST PAIN [None]
